FAERS Safety Report 13776264 (Version 3)
Quarter: 2017Q3

REPORT INFORMATION
  Report Type: Spontaneous
  Country: FR (occurrence: FR)
  Receive Date: 20170721
  Receipt Date: 20170905
  Transmission Date: 20171127
  Serious: Yes (Hospitalization)
  Sender: FDA-Public Use
  Company Number: FR-PFIZER INC-2017310606

PATIENT
  Age: 68 Year
  Sex: Female

DRUGS (19)
  1. GEMCITABINE HYDROCHLORIDE. [Suspect]
     Active Substance: GEMCITABINE HYDROCHLORIDE
     Dosage: 800 MG/M2, CYCLIC
     Route: 042
     Dates: start: 2017
  2. AVASTIN [Suspect]
     Active Substance: BEVACIZUMAB
     Dosage: UNK, EVERY 3 WEEKS
     Route: 042
     Dates: start: 2007
  3. TASIGNA [Suspect]
     Active Substance: NILOTINIB
     Dosage: UNK, CYCLIC
     Route: 048
     Dates: start: 2016
  4. PACLITAXEL. [Suspect]
     Active Substance: PACLITAXEL
     Dosage: UNK, CYCLIC
     Route: 042
     Dates: start: 2010, end: 2014
  5. DOXORUBICIN HCL [Suspect]
     Active Substance: DOXORUBICIN HYDROCHLORIDE
     Dosage: 40 MG/M2, CYCLIC (TOTAL OF 4 CYCLES AT 40MG/M2 PER CYCLE (CUMULATIVE DOSES : 160MG/M2))
     Route: 042
     Dates: start: 2000, end: 2000
  6. TAMOXIFENE CITRATE [Suspect]
     Active Substance: TAMOXIFEN CITRATE
     Indication: HORMONE THERAPY
     Dosage: UNK
     Dates: start: 2000, end: 2003
  7. PALBOCICLIB [Suspect]
     Active Substance: PALBOCICLIB
     Dosage: UNK, CYCLIC
     Route: 048
     Dates: start: 2016
  8. NAVELBINE [Suspect]
     Active Substance: VINORELBINE TARTRATE
     Dosage: UNK, CYCLIC
     Route: 048
     Dates: start: 2010, end: 2014
  9. TAXOTERE [Suspect]
     Active Substance: DOCETAXEL
     Dosage: UNK, CYCLIC
     Route: 042
     Dates: start: 2008
  10. XELODA [Suspect]
     Active Substance: CAPECITABINE
     Dosage: UNK, CYCLIC
     Route: 042
     Dates: start: 2008
  11. FASLODEX [Suspect]
     Active Substance: FULVESTRANT
     Dosage: UNK, CYCLIC
     Route: 042
     Dates: start: 2016, end: 2016
  12. EVEROLIMUS [Suspect]
     Active Substance: EVEROLIMUS
     Dosage: UNK, CYCLIC
     Route: 042
     Dates: start: 2010, end: 2014
  13. TAMOXIFENE CITRATE [Suspect]
     Active Substance: TAMOXIFEN CITRATE
     Dosage: UNK, CYCLIC
     Route: 048
     Dates: start: 2014
  14. EXEMESTANE. [Suspect]
     Active Substance: EXEMESTANE
     Dosage: UNK, CYCLIC
     Route: 048
     Dates: start: 2010, end: 2014
  15. FASLODEX [Suspect]
     Active Substance: FULVESTRANT
     Dosage: UNK, CYCLIC
     Route: 042
     Dates: start: 2010, end: 2014
  16. ERIBULIN MESILATE [Suspect]
     Active Substance: ERIBULIN
     Dosage: UNK, CYCLIC
     Route: 042
     Dates: start: 2010, end: 2014
  17. ENDOXAN /00021101/ [Suspect]
     Active Substance: CYCLOPHOSPHAMIDE
     Dosage: METRONOMIC ADMINISTRATION
     Route: 042
     Dates: start: 2015, end: 2015
  18. AROMASINE [Suspect]
     Active Substance: EXEMESTANE
     Indication: HORMONE THERAPY
     Dosage: UNK, CYCLIC
     Route: 048
     Dates: start: 2009
  19. ENDOXAN /00021101/ [Suspect]
     Active Substance: CYCLOPHOSPHAMIDE
     Dosage: 750 MG/M2, CYCLIC (FOR 4 COURSES AT 750MG/M2/CYCLE)
     Route: 042
     Dates: start: 2000

REACTIONS (2)
  - Acute myeloid leukaemia [Unknown]
  - Second primary malignancy [Unknown]

NARRATIVE: CASE EVENT DATE: 201702
